FAERS Safety Report 16958696 (Version 7)
Quarter: 2020Q4

REPORT INFORMATION
  Report Type: Report from Study
  Country: US (occurrence: US)
  Receive Date: 20191024
  Receipt Date: 20201223
  Transmission Date: 20210113
  Serious: Yes (Other)
  Sender: FDA-Public Use
  Company Number: US-TAKEDA-2019TUS027193

PATIENT
  Age: 55 Year
  Sex: Female
  Weight: 112 kg

DRUGS (1)
  1. PONATINIB [Suspect]
     Active Substance: PONATINIB
     Indication: CHRONIC MYELOID LEUKAEMIA
     Dosage: 15 MILLIGRAM, QD
     Route: 048
     Dates: start: 201903

REACTIONS (15)
  - Pyrexia [Unknown]
  - Nephrolithiasis [Unknown]
  - Staphylococcal infection [Unknown]
  - Vomiting [Unknown]
  - Sinusitis [Unknown]
  - Muscle spasms [Unknown]
  - Adverse drug reaction [Recovering/Resolving]
  - Dysphonia [Unknown]
  - Malaise [Unknown]
  - Headache [Unknown]
  - Fatigue [Unknown]
  - Nasopharyngitis [Unknown]
  - Herpes zoster [Unknown]
  - Gastroenteritis viral [Unknown]
  - Anxiety [Unknown]

NARRATIVE: CASE EVENT DATE: 20190611
